FAERS Safety Report 17495775 (Version 1)
Quarter: 2020Q1

REPORT INFORMATION
  Report Type: Spontaneous
  Country: VN (occurrence: VN)
  Receive Date: 20200304
  Receipt Date: 20200304
  Transmission Date: 20200409
  Serious: Yes (Other)
  Sender: FDA-Public Use
  Company Number: VN-TORRENT-00000002

PATIENT
  Age: 6 Month
  Sex: Female

DRUGS (4)
  1. CIPROFLOXACIN. [Concomitant]
     Active Substance: CIPROFLOXACIN
     Indication: KLEBSIELLA INFECTION
     Dosage: UNKNOWN
  2. AMIKACIN. [Concomitant]
     Active Substance: AMIKACIN
     Indication: KLEBSIELLA INFECTION
     Dosage: UNKNOWN
  3. VANCOMYCIN [Concomitant]
     Active Substance: VANCOMYCIN
     Indication: PSEUDOMONAS INFECTION
     Dosage: UNKNOWN
  4. CARBAMAZEPINE. [Suspect]
     Active Substance: CARBAMAZEPINE
     Indication: PARTIAL SEIZURES
     Dosage: UNKNOWN
     Route: 048

REACTIONS (1)
  - Metabolic disorder [Unknown]
